FAERS Safety Report 6999555-2 (Version None)
Quarter: 2010Q3

REPORT INFORMATION
  Report Type: 
  Country: None (occurrence: None)
  Receive Date: 20100920
  Receipt Date: 20090813
  Transmission Date: 20110219
  Serious: Yes (Other)
  Sender: FDA-Public Use
  Company Number: US-ASTRAZENECA-2009SE08377

PATIENT
  Age: 57 Year
  Sex: Female

DRUGS (6)
  1. SEROQUEL [Suspect]
     Route: 048
     Dates: start: 20040101
  2. LITHIUM CARBONATE [Concomitant]
  3. WELLBUTRIN XL [Concomitant]
  4. AMBIEN CR [Concomitant]
  5. LAMICTAL [Concomitant]
  6. LEVOTHYROXINE SODIUM [Concomitant]

REACTIONS (1)
  - CATARACT [None]
